FAERS Safety Report 18431890 (Version 2)
Quarter: 2020Q4

REPORT INFORMATION
  Report Type: Spontaneous
  Country: US (occurrence: US)
  Receive Date: 20201027
  Receipt Date: 20201221
  Transmission Date: 20210114
  Serious: Yes (Other)
  Sender: FDA-Public Use
  Company Number: US-TORRENT-00010512

PATIENT
  Sex: Male

DRUGS (4)
  1. AMANTADINE. [Interacting]
     Active Substance: AMANTADINE HYDROCHLORIDE
     Indication: PARKINSON^S DISEASE
     Dosage: UNKNOWN
  2. ROPINIROLE. [Interacting]
     Active Substance: ROPINIROLE
     Indication: PARKINSON^S DISEASE
     Dosage: UNKNOWN
  3. CARBIDOPA AND LEVODOPA [Interacting]
     Active Substance: CARBIDOPA\LEVODOPA
     Indication: PARKINSON^S DISEASE
     Dosage: UNKNOWN
  4. ARIPIPRAZOLE. [Suspect]
     Active Substance: ARIPIPRAZOLE
     Indication: TOURETTE^S DISORDER
     Dosage: UNKNOWN

REACTIONS (3)
  - Drug interaction [Unknown]
  - Condition aggravated [Recovering/Resolving]
  - Tic [Recovering/Resolving]
